FAERS Safety Report 8306557-2 (Version None)
Quarter: 2012Q1

REPORT INFORMATION
  Report Type: 
  Country: None (occurrence: None)
  Receive Date: 20120326
  Receipt Date: 20110303
  Transmission Date: 20120608
  Serious: Yes (Other)
  Sender: FDA-Public Use
  Company Number: PHHY2011US17989

PATIENT
  Age: 39 Year
  Sex: Female

DRUGS (11)
  1. TASIGNA [Suspect]
     Dosage: 1XDAY
  2. AMBIEN [Concomitant]
  3. MOVIK [Concomitant]
  4. LORTAB [Concomitant]
  5. ZOFRAN [Concomitant]
  6. SKELAXIN [Concomitant]
  7. PRILOSEC [Concomitant]
  8. NEURONTIN [Concomitant]
  9. CELEXA [Concomitant]
  10. PROVIGIL [Concomitant]
  11. WELLBUTRIN [Concomitant]

REACTIONS (5)
  - HEART RATE INCREASED [None]
  - MOUTH ULCERATION [None]
  - ABDOMINAL DISCOMFORT [None]
  - ELECTROCARDIOGRAM QT INTERVAL ABNORMAL [None]
  - PAIN [None]
